FAERS Safety Report 15800812 (Version 4)
Quarter: 2019Q1

REPORT INFORMATION
  Report Type: Spontaneous
  Country: FR (occurrence: FR)
  Receive Date: 20190109
  Receipt Date: 20190223
  Transmission Date: 20190417
  Serious: Yes (Other)
  Sender: FDA-Public Use
  Company Number: FR-ACCORD-100622

PATIENT
  Age: 60 Year
  Sex: Male

DRUGS (7)
  1. AZITHROMYCIN ANHYDROUS. [Suspect]
     Active Substance: AZITHROMYCIN ANHYDROUS
     Indication: PROPHYLAXIS
     Dosage: 250 MILLIGRAM,EVERY OTHER DAY FOR 3 MONTHS
     Route: 065
  2. SALMETEROL [Suspect]
     Active Substance: SALMETEROL
     Indication: PRODUCT USED FOR UNKNOWN INDICATION
     Dosage: 6 PUFFS/DAY 100 ?G/DAY
     Route: 065
  3. FLUTICASONE. [Suspect]
     Active Substance: FLUTICASONE
     Indication: PRODUCT USED FOR UNKNOWN INDICATION
     Dosage: DOSE: 55G/DAY
     Route: 045
  4. MONTELUKAST [Suspect]
     Active Substance: MONTELUKAST SODIUM
     Indication: PRODUCT USED FOR UNKNOWN INDICATION
     Dosage: 10 MG, DAILY
     Route: 065
  5. ALBUTEROL. [Suspect]
     Active Substance: ALBUTEROL
     Indication: PRODUCT USED FOR UNKNOWN INDICATION
     Dosage: 6 PUFFS/DAY
     Route: 065
  6. LEVOCETIRIZINE/LEVOCETIRIZINE DIHYDROCHLORIDE [Suspect]
     Active Substance: LEVOCETIRIZINE DIHYDROCHLORIDE
     Indication: PRODUCT USED FOR UNKNOWN INDICATION
     Dosage: 5 MG, DAILY
     Route: 065
  7. FLUTICASONE. [Suspect]
     Active Substance: FLUTICASONE
     Indication: PRODUCT USED FOR UNKNOWN INDICATION
     Dosage: 1000 UG,QD
     Route: 065

REACTIONS (5)
  - Lung infection [Unknown]
  - Drug ineffective [Unknown]
  - Hypogammaglobulinaemia [Unknown]
  - Asthma [Recovering/Resolving]
  - Sinusitis [Unknown]
